FAERS Safety Report 18379432 (Version 1)
Quarter: 2020Q4

REPORT INFORMATION
  Report Type: Spontaneous
  Country: US (occurrence: US)
  Receive Date: 20201013
  Receipt Date: 20201013
  Transmission Date: 20210114
  Serious: No
  Sender: FDA-Public Use
  Company Number: US-ENDO PHARMACEUTICALS INC-2020-003914

PATIENT
  Sex: Female

DRUGS (1)
  1. BUTALBITAL, CAFFEINE AND ACETAMINOPHEN [Suspect]
     Active Substance: ACETAMINOPHEN\BUTALBITAL\CAFFEINE
     Indication: MIGRAINE
     Dosage: 50 MG/325 MG/40 MG
     Route: 065

REACTIONS (2)
  - Product dose omission issue [Unknown]
  - Migraine [Unknown]
